FAERS Safety Report 22632565 (Version 1)
Quarter: 2023Q2

REPORT INFORMATION
  Report Type: Spontaneous
  Country: FR (occurrence: FR)
  Receive Date: 20230623
  Receipt Date: 20230623
  Transmission Date: 20230721
  Serious: Yes (Death, Other)
  Sender: FDA-Public Use
  Company Number: FR-AFSSAPS-MP2023000440

PATIENT
  Age: 61 Year
  Sex: Male
  Weight: 96 kg

DRUGS (9)
  1. VALPROIC ACID [Suspect]
     Active Substance: VALPROIC ACID
     Indication: Dyskinesia
     Dosage: UNK, 500 MG IN THE MORNING AND 1000 MG IN THE EVENING
     Route: 048
     Dates: start: 20220118
  2. VENLAFAXINE [Suspect]
     Active Substance: VENLAFAXINE HYDROCHLORIDE
     Indication: Depression
     Dosage: UNK,  1 CAPSULE IN THE MORNING
     Route: 048
     Dates: start: 20230131
  3. PREGABALIN [Suspect]
     Active Substance: PREGABALIN
     Indication: Depression
     Dosage: UNK, 1 IN THE MORNING AND 1 IN THE EVENING
     Route: 048
     Dates: start: 20221209
  4. TRIMEPRAZINE [Suspect]
     Active Substance: TRIMEPRAZINE
     Indication: Psychotic behaviour
     Dosage: UNK, 4 CPR IN THE EVENING
     Route: 048
     Dates: start: 20221209
  5. RISPERIDONE [Suspect]
     Active Substance: RISPERIDONE
     Indication: Schizoaffective disorder
     Dosage: UNK,2 MG IN THE MORNING AND 4 MG IN THE EVENING
     Route: 048
     Dates: start: 20221223
  6. TROPATEPINE HYDROCHLORIDE [Suspect]
     Active Substance: TROPATEPINE HYDROCHLORIDE
     Indication: Dyskinesia hyperpyrexia syndrome
     Dosage: UNK,  1 CPR IN THE MORNING + 1 IF NEEDED
     Route: 048
     Dates: start: 20230102
  7. VALIUM [Suspect]
     Active Substance: DIAZEPAM
     Indication: Anxiety
     Dosage: UNK, 15 DROPS MORNING, AFTERNOON AND BEDTIME
     Route: 048
     Dates: start: 20230104
  8. MIRTAZAPINE [Suspect]
     Active Substance: MIRTAZAPINE
     Indication: Depression
     Dosage: UNK,  1 CPR IN THE EVENING
     Route: 048
     Dates: start: 20230130
  9. PALIPERIDONE PALMITATE [Suspect]
     Active Substance: PALIPERIDONE PALMITATE
     Indication: Schizophrenia
     Dosage: UNK,1 INJ PER 28 DAYS, FEBRUARY 1 EVENING
     Route: 030
     Dates: start: 20230201

REACTIONS (1)
  - Cardio-respiratory arrest [Fatal]

NARRATIVE: CASE EVENT DATE: 20230202
